FAERS Safety Report 17214168 (Version 8)
Quarter: 2021Q3

REPORT INFORMATION
  Report Type: Spontaneous
  Country: US (occurrence: US)
  Receive Date: 20191230
  Receipt Date: 20210930
  Transmission Date: 20211014
  Serious: Yes (Other)
  Sender: FDA-Public Use
  Company Number: US-PFIZER INC-2019558560

PATIENT
  Age: 54 Year
  Sex: Female

DRUGS (6)
  1. IBRANCE [Suspect]
     Active Substance: PALBOCICLIB
     Indication: BREAST CANCER FEMALE
     Dosage: 125 MG, CYCLIC (DAILY FOR 3 WEEKS ON THEN, 1 WEEK OFF/1 DAILY FOR 21 DAYS)
     Route: 048
     Dates: start: 20191217
  2. MULTIVITAMINS [VITAMINS NOS] [Concomitant]
     Active Substance: VITAMINS
     Dosage: UNK
  3. IBRANCE [Suspect]
     Active Substance: PALBOCICLIB
     Dosage: 125 MG
  4. LORATADINE. [Concomitant]
     Active Substance: LORATADINE
     Dosage: 10 MG, UNK
  5. ALEVE [Concomitant]
     Active Substance: NAPROXEN SODIUM
     Dosage: 220 MG, UNK
  6. CALCIUM CARBONATE. [Concomitant]
     Active Substance: CALCIUM CARBONATE
     Dosage: UNK

REACTIONS (20)
  - Decreased appetite [Unknown]
  - Paraesthesia [Unknown]
  - Hot flush [Unknown]
  - Fatigue [Unknown]
  - Polycystic ovaries [Unknown]
  - Weight increased [Not Recovered/Not Resolved]
  - Staphylococcal infection [Unknown]
  - Syncope [Unknown]
  - Blood pressure abnormal [Unknown]
  - Chills [Unknown]
  - Feeling abnormal [Unknown]
  - Nasal discomfort [Unknown]
  - Epistaxis [Not Recovered/Not Resolved]
  - Nausea [Unknown]
  - Abdominal discomfort [Unknown]
  - Poor quality sleep [Unknown]
  - Anxiety [Unknown]
  - Dyspepsia [Unknown]
  - Insulin resistance [Unknown]
  - Headache [Unknown]

NARRATIVE: CASE EVENT DATE: 202007
